FAERS Safety Report 13583368 (Version 3)
Quarter: 2018Q1

REPORT INFORMATION
  Report Type: Spontaneous
  Country: IT (occurrence: IT)
  Receive Date: 20170525
  Receipt Date: 20180327
  Transmission Date: 20180508
  Serious: Yes (Other)
  Sender: FDA-Public Use
  Company Number: IT-AUROBINDO-AUR-APL-2017-34342

PATIENT
  Age: 18 Year
  Sex: Female

DRUGS (11)
  1. DUFASTON [Suspect]
     Active Substance: DYDROGESTERONE
     Indication: PRODUCT USED FOR UNKNOWN INDICATION
     Dosage: 2 DF, TOTAL
     Route: 048
  2. KEPPRA [Suspect]
     Active Substance: LEVETIRACETAM
     Indication: INTENTIONAL SELF-INJURY
     Dosage: STRENGTH: 1000 MG, 2 DF, TOTAL ; IN TOTAL
     Route: 048
     Dates: start: 20170501, end: 20170501
  3. DUFASTON [Suspect]
     Active Substance: DYDROGESTERONE
     Indication: INTENTIONAL SELF-INJURY
     Dosage: STRENGTH: 10 MG, 2 DF, TOTAL ; IN TOTAL
     Route: 048
     Dates: start: 20170501, end: 20170501
  4. RAMIPRIL TABLET [Suspect]
     Active Substance: RAMIPRIL
     Indication: PRODUCT USED FOR UNKNOWN INDICATION
     Dosage: 5 MG, TOTAL
     Route: 048
  5. DELTACORTENE [Suspect]
     Active Substance: PREDNISONE
     Indication: PRODUCT USED FOR UNKNOWN INDICATION
     Dosage: 3 DF, TOTAL
     Route: 048
  6. DELTACORTENE [Suspect]
     Active Substance: PREDNISONE
     Indication: INTENTIONAL SELF-INJURY
     Dosage: STRENGTH: 25 MG, 3 DF, TOTAL ; IN TOTAL
     Route: 048
     Dates: start: 20170501, end: 20170501
  7. FLUCONAZOLE. [Suspect]
     Active Substance: FLUCONAZOLE
     Indication: INTENTIONAL SELF-INJURY
     Dosage: 1 DF, TOTAL ; IN TOTAL
     Route: 048
     Dates: start: 20170501, end: 20170501
  8. KEPPRA [Suspect]
     Active Substance: LEVETIRACETAM
     Indication: PRODUCT USED FOR UNKNOWN INDICATION
     Dosage: 2 DF, TOTAL
     Route: 048
  9. CELECOXIB. [Suspect]
     Active Substance: CELECOXIB
     Indication: PRODUCT USED FOR UNKNOWN INDICATION
     Dosage: 2 DF,TOTAL
     Route: 048
  10. CELECOXIB. [Suspect]
     Active Substance: CELECOXIB
     Indication: INTENTIONAL SELF-INJURY
     Dosage: 2 DF, TOTAL ; IN TOTAL
     Route: 048
     Dates: start: 20170501, end: 20170501
  11. FLUCONAZOLE. [Suspect]
     Active Substance: FLUCONAZOLE
     Indication: PRODUCT USED FOR UNKNOWN INDICATION
     Dosage: 1 DF,TOTAL
     Route: 048

REACTIONS (5)
  - Drug abuse [Unknown]
  - Toxicity to various agents [Unknown]
  - Intentional self-injury [Unknown]
  - Drug use disorder [Unknown]
  - Headache [Unknown]

NARRATIVE: CASE EVENT DATE: 20170501
